FAERS Safety Report 8139318-8 (Version None)
Quarter: 2012Q1

REPORT INFORMATION
  Report Type: 
  Country: None (occurrence: None)
  Receive Date: 20120215
  Receipt Date: 20120208
  Transmission Date: 20120608
  Serious: Yes (Hospitalization)
  Sender: FDA-Public Use
  Company Number: JP-SHIRE-ALL1-2012-00351

PATIENT
  Age: 60 Year
  Sex: Male

DRUGS (5)
  1. TAGAMET [Concomitant]
     Indication: GASTRIC ULCER
     Dosage: 400 MG, UNKNOWN
     Route: 048
     Dates: start: 20030731
  2. NIFEDIPINE [Suspect]
     Indication: HYPERTENSION
     Dosage: 10 MG, UNKNOWN
     Route: 048
     Dates: start: 20030731
  3. FOSRENOL [Suspect]
     Indication: RENAL FAILURE CHRONIC
     Dosage: 1500 MG, UNKNOWN
     Route: 048
  4. FOSRENOL [Suspect]
     Indication: HYPERPHOSPHATAEMIA
  5. CARTARETIN [Concomitant]
     Indication: HYPERPHOSPHATAEMIA
     Dosage: UNK, UNKNOWN
     Route: 048
     Dates: start: 20030731

REACTIONS (2)
  - WRONG TECHNIQUE IN DRUG USAGE PROCESS [None]
  - ILEUS [None]
